FAERS Safety Report 9155583 (Version 2)
Quarter: 2013Q2

REPORT INFORMATION
  Report Type: Spontaneous
  Country: FR (occurrence: FR)
  Receive Date: 20130311
  Receipt Date: 20130404
  Transmission Date: 20140414
  Serious: Yes (Death, Hospitalization)
  Sender: FDA-Public Use
  Company Number: FR-ACTELION-A-CH2013-80381

PATIENT
  Age: 9 Year
  Sex: Male
  Weight: 23 kg

DRUGS (3)
  1. ZAVESCA [Suspect]
     Indication: TAY-SACHS DISEASE
     Dosage: 50 MG, TID
     Route: 048
     Dates: start: 20110830, end: 20120802
  2. RISPERIDONE [Concomitant]
     Indication: AGITATION
     Dosage: UNK
     Dates: end: 20120802
  3. MELATONIN [Concomitant]
     Indication: INSOMNIA
     Dosage: UNK
     Dates: end: 20120802

REACTIONS (3)
  - Status epilepticus [Fatal]
  - Myoclonic epilepsy [Fatal]
  - Mechanical ventilation [Fatal]
